FAERS Safety Report 15490557 (Version 3)
Quarter: 2021Q2

REPORT INFORMATION
  Report Type: Report from Study
  Country: FR (occurrence: FR)
  Receive Date: 20181011
  Receipt Date: 20210521
  Transmission Date: 20210716
  Serious: Yes (Other)
  Sender: FDA-Public Use
  Company Number: PHHY2018FR103347

PATIENT
  Sex: Male
  Weight: 115 kg

DRUGS (1)
  1. VOTRIENT [Suspect]
     Active Substance: PAZOPANIB HYDROCHLORIDE
     Indication: METASTATIC RENAL CELL CARCINOMA
     Dosage: 800 MG, QD (LAST DOSE RECEIVED ON 24 SEP 2018)
     Route: 048
     Dates: start: 20180806, end: 20180924

REACTIONS (3)
  - Dyspnoea [Unknown]
  - Ejection fraction decreased [Not Recovered/Not Resolved]
  - Lung disorder [Recovered/Resolved]

NARRATIVE: CASE EVENT DATE: 201809
